FAERS Safety Report 23103651 (Version 1)
Quarter: 2023Q4

REPORT INFORMATION
  Report Type: Spontaneous
  Country: US (occurrence: None)
  Receive Date: 20231024
  Receipt Date: 20231024
  Transmission Date: 20240109
  Serious: Yes (Hospitalization)
  Sender: FDA-Public Use
  Company Number: None

PATIENT
  Age: 76 Year
  Sex: Female

DRUGS (1)
  1. BELATACEPT [Suspect]
     Active Substance: BELATACEPT
     Indication: Renal transplant
     Dosage: OTHER FREQUENCY : EVERY 28 DAYS;?
     Route: 042

REACTIONS (12)
  - Cytomegalovirus viraemia [None]
  - Urinary tract infection [None]
  - Clostridium difficile infection [None]
  - Renal neoplasm [None]
  - Hydronephrosis [None]
  - Complications of transplanted kidney [None]
  - Acute kidney injury [None]
  - White blood cell count decreased [None]
  - Ureteric obstruction [None]
  - Renal cell carcinoma [None]
  - Soft tissue mass [None]
  - Epstein-Barr virus infection [None]

NARRATIVE: CASE EVENT DATE: 20231019
